FAERS Safety Report 4952370-3 (Version None)
Quarter: 2006Q1

REPORT INFORMATION
  Report Type: 
  Country: None (occurrence: None)
  Receive Date: 20060320
  Receipt Date: 20060308
  Transmission Date: 20060701
  Serious: Yes (Life-Threatening)
  Sender: FDA-Public Use
  Company Number: 06H-163-0306192-00

PATIENT
  Age: 65 Year
  Sex: Male
  Weight: 70 kg

DRUGS (6)
  1. BUPIVACAINE HYDROCHLORIDE INJECTION(BUPIVACAINE HYDROCHLORIDE) (BUPIVA [Suspect]
     Indication: LOCAL ANAESTHESIA
     Dosage: LESS THAN 1.1 MG/KG, INJECTION
  2. PROPOFOL [Concomitant]
  3. OXYGEN (OXYGEN) [Concomitant]
  4. ETOMIDATE [Concomitant]
  5. SUCCINYLCHOLINE CHLORIDE [Concomitant]
  6. 100% OXYGEN (OXYGEN) [Concomitant]

REACTIONS (10)
  - ATRIOVENTRICULAR BLOCK FIRST DEGREE [None]
  - CARDIAC ARREST [None]
  - CIRCULATORY COLLAPSE [None]
  - DRUG INTERACTION [None]
  - DYSPNOEA [None]
  - ELECTROCARDIOGRAM QRS COMPLEX ABNORMAL [None]
  - QRS AXIS ABNORMAL [None]
  - RESPIRATORY ARREST [None]
  - SHOCK [None]
  - VENTRICULAR HYPOKINESIA [None]
